FAERS Safety Report 9773492 (Version 1)
Quarter: 2013Q4

REPORT INFORMATION
  Report Type: Spontaneous
  Country: US (occurrence: US)
  Receive Date: 20131219
  Receipt Date: 20131219
  Transmission Date: 20140711
  Serious: Yes (Hospitalization, Other)
  Sender: FDA-Public Use
  Company Number: US-B.I. PHARMACEUTICALS,INC./RIDGEFIELD-2013-BI-42043BP

PATIENT
  Sex: Male
  Weight: 103 kg

DRUGS (1)
  1. MOBIC [Suspect]
     Route: 048

REACTIONS (9)
  - Cardiac fibrillation [Not Recovered/Not Resolved]
  - Aneurysm [Not Recovered/Not Resolved]
  - Aneurysm [Not Recovered/Not Resolved]
  - Thrombosis [Not Recovered/Not Resolved]
  - Prostate cancer [Not Recovered/Not Resolved]
  - Swelling [Recovered/Resolved]
  - Neck mass [Not Recovered/Not Resolved]
  - Hearing impaired [Not Recovered/Not Resolved]
  - Diabetes mellitus [Not Recovered/Not Resolved]
